FAERS Safety Report 24190258 (Version 1)
Quarter: 2024Q3

REPORT INFORMATION
  Report Type: Spontaneous
  Country: US (occurrence: None)
  Receive Date: 20240808
  Receipt Date: 20240808
  Transmission Date: 20241016
  Serious: Yes (Hospitalization)
  Sender: Public
  Company Number: None

PATIENT
  Age: 78 Year
  Sex: Female

DRUGS (11)
  1. LENALIDOMIDE [Suspect]
     Active Substance: LENALIDOMIDE
     Indication: Plasma cell myeloma
     Dates: start: 20240418
  2. ACYCLOVIR [Concomitant]
     Active Substance: ACYCLOVIR
  3. AMLODIPINE [Suspect]
     Active Substance: AMLODIPINE BESYLATE
  4. ASPIRIN [Concomitant]
     Active Substance: ASPIRIN
  5. CHROMIUM PIG [Concomitant]
  6. CITRACA/VITAMIN D [Concomitant]
  7. CORTISONE CRE [Concomitant]
  8. DARZALEX SOL [Concomitant]
  9. DEXAMETHASONE [Concomitant]
     Active Substance: DEXAMETHASONE
  10. DIPHENHYDRAM [Concomitant]
  11. FENTANYL DIS [Concomitant]

REACTIONS (5)
  - White blood cell count decreased [None]
  - Loss of consciousness [None]
  - Pneumonia [None]
  - Sepsis [None]
  - Diarrhoea [None]

NARRATIVE: CASE EVENT DATE: 20240705
